FAERS Safety Report 4636258-3 (Version None)
Quarter: 2005Q2

REPORT INFORMATION
  Report Type: 
  Country: None (occurrence: None)
  Receive Date: 20050415
  Receipt Date: 20040406
  Transmission Date: 20051028
  Serious: No
  Sender: FDA-Public Use
  Company Number: US-BRISTOL-MYERS SQUIBB COMPANY-12553731

PATIENT
  Age: 77 Year
  Sex: Female
  Weight: 165 kg

DRUGS (6)
  1. CARBOPLATIN [Suspect]
     Indication: OVARIAN CANCER
     Route: 042
     Dates: start: 20040331, end: 20040331
  2. GEMZAR [Concomitant]
     Route: 042
  3. ANZEMET [Concomitant]
     Route: 042
  4. DECADRON [Concomitant]
     Route: 042
  5. PEPCID [Concomitant]
     Route: 042
  6. BENADRYL [Concomitant]
     Route: 042

REACTIONS (3)
  - FLUSHING [None]
  - PHARYNX DISCOMFORT [None]
  - TACHYCARDIA [None]
